FAERS Safety Report 4685920-5 (Version None)
Quarter: 2005Q2

REPORT INFORMATION
  Report Type: 
  Country: None (occurrence: None)
  Receive Date: 20050609
  Receipt Date: 20050602
  Transmission Date: 20051028
  Serious: Yes (Other)
  Sender: FDA-Public Use
  Company Number: US-KINGPHARMUSA00001-K200500747

PATIENT
  Age: 48 Year
  Sex: Male

DRUGS (2)
  1. ALTACE [Suspect]
     Indication: MITRAL VALVE INCOMPETENCE
     Dosage: 2.5 MG, QD
     Route: 048
     Dates: start: 20041001
  2. ALTACE [Suspect]
     Dosage: 2.5 MG, QD
     Route: 048

REACTIONS (1)
  - GOUT [None]
